FAERS Safety Report 17669431 (Version 1)
Quarter: 2020Q2

REPORT INFORMATION
  Report Type: Spontaneous
  Country: US (occurrence: US)
  Receive Date: 20200415
  Receipt Date: 20200415
  Transmission Date: 20200713
  Serious: No
  Sender: FDA-Public Use
  Company Number: US-TEVA-2020-US-1222107

PATIENT
  Sex: Female
  Weight: 123.8 kg

DRUGS (2)
  1. ALYQ [Suspect]
     Active Substance: TADALAFIL
     Route: 065
     Dates: start: 20200124
  2. REMODULIN [Suspect]
     Active Substance: TREPROSTINIL
     Indication: PULMONARY ARTERIAL HYPERTENSION
     Route: 065

REACTIONS (1)
  - Migraine [Unknown]
